FAERS Safety Report 7421850-3 (Version None)
Quarter: 2011Q2

REPORT INFORMATION
  Report Type: 
  Country: None (occurrence: None)
  Receive Date: 20110418
  Receipt Date: 20110407
  Transmission Date: 20111010
  Serious: Yes (Other)
  Sender: FDA-Public Use
  Company Number: US-CEPHALON-2011001728

PATIENT
  Sex: Female

DRUGS (5)
  1. AMBIEN [Concomitant]
     Dates: start: 20100909
  2. ULTRAM [Concomitant]
     Dates: start: 20090801
  3. FLEXERIL [Concomitant]
     Dates: start: 20090401
  4. NUVIGIL [Suspect]
     Indication: FATIGUE
     Route: 048
     Dates: start: 20101230, end: 20110130
  5. TYSABRI [Concomitant]
     Dates: start: 20100801

REACTIONS (4)
  - OROPHARYNGEAL BLISTERING [None]
  - DRY MOUTH [None]
  - TONGUE BLISTERING [None]
  - HYPERSENSITIVITY [None]
